FAERS Safety Report 23869699 (Version 1)
Quarter: 2024Q2

REPORT INFORMATION
  Report Type: Spontaneous
  Country: US (occurrence: US)
  Receive Date: 20240517
  Receipt Date: 20240517
  Transmission Date: 20240716
  Serious: No
  Sender: FDA-Public Use
  Company Number: US-PFIZER INC-202400130378

PATIENT
  Age: 47 Year
  Sex: Male

DRUGS (3)
  1. EUCRISA [Suspect]
     Active Substance: CRISABOROLE
     Indication: Rash
     Dosage: UNK
  2. EUCRISA [Suspect]
     Active Substance: CRISABOROLE
     Indication: Dermatitis contact
  3. EUCRISA [Suspect]
     Active Substance: CRISABOROLE
     Indication: Rash

REACTIONS (2)
  - Drug ineffective for unapproved indication [Unknown]
  - Off label use [Unknown]
